FAERS Safety Report 7207564-3 (Version None)
Quarter: 2011Q1

REPORT INFORMATION
  Report Type: 
  Country: None (occurrence: None)
  Receive Date: 20110103
  Receipt Date: 20101224
  Transmission Date: 20110831
  Serious: Yes (Hospitalization, Other)
  Sender: FDA-Public Use
  Company Number: NL-ABBOTT-10P-114-0687351-00

PATIENT
  Sex: Female
  Weight: 69 kg

DRUGS (3)
  1. LEVONORGESTREL + ETHINYL ESTRADIOL [Concomitant]
     Indication: CONTRACEPTION
     Dosage: 20/100 MCG, 1 UNIT DAILY
     Route: 048
  2. TEMAZEPAM [Concomitant]
     Indication: INSOMNIA
     Route: 048
     Dates: start: 20100101
  3. HUMIRA [Suspect]
     Indication: CROHN'S DISEASE
     Route: 058
     Dates: start: 20100522, end: 20100903

REACTIONS (6)
  - RASH [None]
  - INTESTINAL RESECTION [None]
  - PYREXIA [None]
  - PRURITUS [None]
  - ABSCESS INTESTINAL [None]
  - INTESTINAL PERFORATION [None]
